FAERS Safety Report 11988684 (Version 1)
Quarter: 2016Q1

REPORT INFORMATION
  Report Type: Report from Study
  Country: US (occurrence: US)
  Receive Date: 20160202
  Receipt Date: 20160202
  Transmission Date: 20160526
  Serious: Yes (Other)
  Sender: FDA-Public Use
  Company Number: PHEH2016US002063

PATIENT
  Sex: Female

DRUGS (2)
  1. ILARIS [Suspect]
     Active Substance: CANAKINUMAB
     Indication: PRODUCT USED FOR UNKNOWN INDICATION
     Dosage: 300 MG, EVERY 8 WEEKS
     Route: 058
  2. ILARIS [Suspect]
     Active Substance: CANAKINUMAB
     Dosage: UNK
     Route: 058
     Dates: start: 20150127

REACTIONS (16)
  - Cerebrovascular accident [Unknown]
  - Anaemia [Unknown]
  - Anxiety [Unknown]
  - Cryopyrin associated periodic syndrome [Unknown]
  - Iron deficiency [Unknown]
  - Inappropriate schedule of drug administration [Unknown]
  - Visual impairment [Unknown]
  - Vomiting [Not Recovered/Not Resolved]
  - Substance abuse [Unknown]
  - Meningitis aseptic [Unknown]
  - Malaise [Unknown]
  - Papilloedema [Unknown]
  - Bone pain [Unknown]
  - Brain oedema [Not Recovered/Not Resolved]
  - Pain [Unknown]
  - Nausea [Not Recovered/Not Resolved]
